FAERS Safety Report 6884048-3 (Version None)
Quarter: 2010Q3

REPORT INFORMATION
  Report Type: 
  Country: None (occurrence: None)
  Receive Date: 20100729
  Receipt Date: 20100716
  Transmission Date: 20110219
  Serious: Yes (Hospitalization, Other)
  Sender: FDA-Public Use
  Company Number: PHHY2010ES46803

PATIENT
  Sex: Female

DRUGS (2)
  1. ACLASTA [Suspect]
     Indication: OSTEOPOROSIS
     Dosage: 5 MG
     Route: 042
     Dates: start: 20080401
  2. CLAVERSAL [Concomitant]
     Indication: COLITIS ULCERATIVE
     Dosage: UNK

REACTIONS (3)
  - ACUTE MYOCARDIAL INFARCTION [None]
  - NECROSIS [None]
  - QUALITY OF LIFE DECREASED [None]
